FAERS Safety Report 23111587 (Version 2)
Quarter: 2023Q4

REPORT INFORMATION
  Report Type: Spontaneous
  Country: TR (occurrence: TR)
  Receive Date: 20231026
  Receipt Date: 20231109
  Transmission Date: 20240109
  Serious: Yes (Hospitalization)
  Sender: FDA-Public Use
  Company Number: TR-TEVA-2023-TR-2937901

PATIENT
  Age: 35 Year
  Sex: Male

DRUGS (5)
  1. RISPERIDONE [Suspect]
     Active Substance: RISPERIDONE
     Indication: Dandy-Walker syndrome
     Dosage: TREATMENT WITH RISPERIDONE AND GRADUALLY TITRATED UP TO 8MG
     Route: 065
  2. PALIPERIDONE [Suspect]
     Active Substance: PALIPERIDONE
     Indication: Dandy-Walker syndrome
     Dosage: 12 MG
     Route: 065
  3. OLANZAPINE [Suspect]
     Active Substance: OLANZAPINE
     Indication: Dandy-Walker syndrome
     Dosage: 20 MG
     Route: 065
  4. HALOPERIDOL [Suspect]
     Active Substance: HALOPERIDOL
     Indication: Dandy-Walker syndrome
     Route: 065
  5. BIPERIDEN [Suspect]
     Active Substance: BIPERIDEN
     Indication: Dandy-Walker syndrome
     Route: 065

REACTIONS (4)
  - Extrapyramidal disorder [Unknown]
  - Drug ineffective [Unknown]
  - Intentional product misuse [Unknown]
  - Treatment noncompliance [Unknown]
